FAERS Safety Report 20612028 (Version 1)
Quarter: 2022Q1

REPORT INFORMATION
  Report Type: Spontaneous
  Country: NL (occurrence: NL)
  Receive Date: 20220318
  Receipt Date: 20220318
  Transmission Date: 20220423
  Serious: Yes (Other)
  Sender: FDA-Public Use
  Company Number: None

PATIENT
  Sex: Male
  Weight: 82 kg

DRUGS (7)
  1. AMLODIPINE [Suspect]
     Active Substance: AMLODIPINE BESYLATE
     Indication: Angina pectoris
     Dosage: 10 MILLIGRAM DAILY; 1X1DD
     Dates: start: 202109, end: 20220210
  2. CANDESARTAN [Concomitant]
     Active Substance: CANDESARTAN
     Dosage: 32 MG (MILLIGRAM) ,THERAPY START DATE AND END DATE : ASKU
  3. ATORVASTATIN [Concomitant]
     Active Substance: ATORVASTATIN
     Dosage: 20 MG (MILLIGRAM) , THERAPY START DATE AND END DATE : ASKU
  4. ISORDIL [Concomitant]
     Active Substance: ISOSORBIDE DINITRATE
     Dosage: SUBLINGUAL TABLET 5MG ,THERAPY START DATE AND END DATE : ASKU
  5. KETOCONAZOL/TRIAMCINOLONACETONIDE [Concomitant]
     Dosage: 20/1 MG/G (MILLIGRAM PER GRAM) , THERAPY START DATE AND END DATE : ASKU
  6. ASPIRIN [Concomitant]
     Active Substance: ASPIRIN
     Dosage: 80 MG (MILLIGRAM) , THERAPY START DATE AND END DATE : ASKU
  7. ISOSORBIDE MONONITRATE [Concomitant]
     Active Substance: ISOSORBIDE MONONITRATE
     Dosage: MODIFIED RELEASE CAPSULE, 25 MG (MILLIGRAM) , ISOSORBIDEMONONITRAAT CAPSULE MGA  25MG / BRAND NAME N

REACTIONS (2)
  - Erectile dysfunction [Unknown]
  - Libido decreased [Unknown]
